FAERS Safety Report 8765517 (Version 2)
Quarter: 2012Q4

REPORT INFORMATION
  Report Type: 
  Country: US (occurrence: US)
  Receive Date: 20120903
  Receipt Date: 20121130
  Transmission Date: 20130627
  Serious: Yes (Hospitalization, Other)
  Sender: FDA-Public Use
  Company Number: US-BRISTOL-MYERS SQUIBB COMPANY-16888174

PATIENT
  Age: 51 Year
  Sex: Female
  Weight: 83.9 kg

DRUGS (3)
  1. ORENCIA [Suspect]
     Indication: RHEUMATOID ARTHRITIS
     Dosage: Restat 4 months ago
     Route: 042
  2. METHOTREXATE [Concomitant]
  3. ARAVA [Concomitant]

REACTIONS (3)
  - Myocardial infarction [Unknown]
  - Post procedural infection [Unknown]
  - Mitral valve disease [Unknown]
